FAERS Safety Report 6508200-1 (Version None)
Quarter: 2009Q4

REPORT INFORMATION
  Report Type: 
  Country: None (occurrence: None)
  Receive Date: 20091221
  Receipt Date: 20081211
  Transmission Date: 20100525
  Serious: Yes (Other)
  Sender: FDA-Public Use
  Company Number: US-ASTRAZENECA-2008UW27720

PATIENT
  Sex: Male

DRUGS (3)
  1. CRESTOR [Suspect]
     Dates: start: 20081101
  2. INSULIN [Concomitant]
  3. PROPRANOLOL [Concomitant]

REACTIONS (1)
  - BLOOD CREATINE PHOSPHOKINASE INCREASED [None]
